FAERS Safety Report 17134868 (Version 1)
Quarter: 2019Q4

REPORT INFORMATION
  Report Type: Spontaneous
  Country: DE (occurrence: DE)
  Receive Date: 20191210
  Receipt Date: 20191210
  Transmission Date: 20200122
  Serious: Yes (Death, Other)
  Sender: FDA-Public Use
  Company Number: NVSC2019DE062235

PATIENT
  Age: 81 Year
  Sex: Female
  Weight: 90 kg

DRUGS (1)
  1. METFORMIN [Suspect]
     Active Substance: METFORMIN HYDROCHLORIDE
     Indication: TYPE 2 DIABETES MELLITUS
     Dosage: 1000 MG, Q12H ( 1-0-1)
     Route: 048

REACTIONS (6)
  - Hypotension [Fatal]
  - Hypoxia [Fatal]
  - Lactic acidosis [Fatal]
  - Circulatory collapse [Fatal]
  - Anuria [Fatal]
  - Acute kidney injury [Fatal]

NARRATIVE: CASE EVENT DATE: 20191010
